FAERS Safety Report 11683146 (Version 3)
Quarter: 2016Q4

REPORT INFORMATION
  Report Type: Spontaneous
  Country: BR (occurrence: BR)
  Receive Date: 20151029
  Receipt Date: 20161220
  Transmission Date: 20170206
  Serious: Yes (Other)
  Sender: FDA-Public Use
  Company Number: BR-PFIZER INC-2015325811

PATIENT
  Age: 52 Year
  Sex: Male

DRUGS (4)
  1. FRONTAL [Suspect]
     Active Substance: ALPRAZOLAM
     Indication: ANXIETY
     Dosage: 2, 3 OR 4 TABLETS (1 MG EACH), DAILY
     Dates: start: 2001
  2. ZETRON [Concomitant]
     Dosage: UNK
  3. FRONTAL SL [Suspect]
     Active Substance: ALPRAZOLAM
     Indication: ANXIETY
     Dosage: UNK
     Route: 060
     Dates: start: 201506
  4. FRONTAL [Suspect]
     Active Substance: ALPRAZOLAM
     Indication: STRESS
     Dosage: UNK
     Dates: start: 1995

REACTIONS (3)
  - Feeling abnormal [Unknown]
  - Drug ineffective [Not Recovered/Not Resolved]
  - Dependence [Not Recovered/Not Resolved]
